FAERS Safety Report 8519396-4 (Version None)
Quarter: 2012Q3

REPORT INFORMATION
  Report Type: 
  Country: None (occurrence: None)
  Receive Date: 20120718
  Receipt Date: 20120705
  Transmission Date: 20120928
  Serious: Yes (Hospitalization)
  Sender: FDA-Public Use
  Company Number: ES-MYLANLABS-2012S1014084

PATIENT
  Age: 6 Decade
  Sex: Male

DRUGS (6)
  1. LEVOFLOXACIN [Concomitant]
     Indication: PNEUMONIA
     Route: 048
  2. CYCLOSPORINE [Suspect]
     Route: 065
  3. COTRIM [Concomitant]
     Dosage: DF = 800/160MG
     Route: 065
  4. VORICONAZOLE [Suspect]
     Indication: ANTIFUNGAL PROPHYLAXIS
     Route: 048
  5. PREDNISONE [Suspect]
     Route: 065
  6. ACYCLOVIR [Concomitant]
     Route: 065

REACTIONS (2)
  - FUNGAEMIA [None]
  - DRUG RESISTANCE [None]
